FAERS Safety Report 13137221 (Version 1)
Quarter: 2017Q1

REPORT INFORMATION
  Report Type: Other
  Country: US (occurrence: US)
  Receive Date: 20170123
  Receipt Date: 20170123
  Transmission Date: 20170428
  Serious: No
  Sender: FDA-Public Use
  Company Number: US-SHIRE-US201616232

PATIENT
  Age: 69 Year
  Sex: Female

DRUGS (1)
  1. NATPARA (PARATHYROID HORMONE) [Suspect]
     Active Substance: PARATHYROID HORMONE
     Indication: HYPOPARATHYROIDISM
     Dosage: 25 ?G, UNKNOWN
     Route: 058
     Dates: start: 20161003, end: 2016

REACTIONS (6)
  - Drug dose omission [Recovering/Resolving]
  - Malaise [Not Recovered/Not Resolved]
  - Headache [Recovered/Resolved]
  - Feeding disorder [Not Recovered/Not Resolved]
  - Bone pain [Recovering/Resolving]
  - Peripheral swelling [Recovered/Resolved]

NARRATIVE: CASE EVENT DATE: 20161017
